FAERS Safety Report 7859961-0 (Version None)
Quarter: 2011Q4

REPORT INFORMATION
  Report Type: 
  Country: None (occurrence: None)
  Receive Date: 20111025
  Receipt Date: 20111011
  Transmission Date: 20120403
  Serious: Yes (Hospitalization, Other)
  Sender: FDA-Public Use
  Company Number: 11-001101

PATIENT
  Age: 17 Year
  Sex: Female
  Weight: 53.1 kg

DRUGS (3)
  1. LOESTRIN 24 FE [Suspect]
     Indication: CONTRACEPTION
     Dosage: 20/1000 UG, DQ, ORAL
     Route: 048
     Dates: start: 20110801, end: 20110831
  2. LOESTRIN 24 FE [Suspect]
     Indication: MIGRAINE
     Dosage: 20/1000 UG, DQ, ORAL
     Route: 048
     Dates: start: 20110801, end: 20110831
  3. LOESTRIN 24 FE [Suspect]
     Indication: MENSTRUATION IRREGULAR
     Dosage: 20/1000 UG, DQ, ORAL
     Route: 048
     Dates: start: 20110801, end: 20110831

REACTIONS (4)
  - MOYAMOYA DISEASE [None]
  - CONDITION AGGRAVATED [None]
  - TRANSIENT ISCHAEMIC ATTACK [None]
  - CEREBROVASCULAR ACCIDENT [None]
